FAERS Safety Report 25564289 (Version 1)
Quarter: 2025Q3

REPORT INFORMATION
  Report Type: Spontaneous
  Country: US (occurrence: US)
  Receive Date: 20250716
  Receipt Date: 20250716
  Transmission Date: 20251021
  Serious: Yes (Other)
  Sender: COOPERSURGICAL
  Company Number: US-COOPERSURGICAL, INC.-2025CPS003900

PATIENT
  Age: 40 Year
  Sex: Female
  Weight: 57.143 kg

DRUGS (3)
  1. PARAGARD T 380A [Suspect]
     Active Substance: COPPER
     Indication: Contraception
     Route: 015
     Dates: start: 20250409
  2. CYTOTEC [Concomitant]
     Active Substance: MISOPROSTOL
     Dosage: 1 DOSAGE FORM, 1X/DAY, 3 NIGHTS BEFORE THE PROCEDURE
     Route: 067
  3. CYTOTEC [Concomitant]
     Active Substance: MISOPROSTOL
     Dosage: 1 DOSAGE FORM, 1X/DAY, ON THE MORNING OF THE PROCEDURE

REACTIONS (2)
  - Ovarian cyst [Unknown]
  - Device dislocation [Not Recovered/Not Resolved]

NARRATIVE: CASE EVENT DATE: 20250507
